FAERS Safety Report 23049811 (Version 1)
Quarter: 2023Q4

REPORT INFORMATION
  Report Type: Spontaneous
  Country: US (occurrence: None)
  Receive Date: 20231007
  Receipt Date: 20231007
  Transmission Date: 20240110
  Serious: Yes (Life-Threatening)
  Sender: FDA-Public Use
  Company Number: None

PATIENT
  Age: 49 Year
  Sex: Male
  Weight: 83.25 kg

DRUGS (1)
  1. FLOMAX [Suspect]
     Active Substance: TAMSULOSIN HYDROCHLORIDE
     Indication: Dysuria
     Dosage: OTHER QUANTITY : 1 CAPSULE(S);?FREQUENCY : TWICE A DAY;?
     Route: 048
     Dates: start: 20210901, end: 20220601

REACTIONS (7)
  - Skin lesion [None]
  - Middle insomnia [None]
  - Pain [None]
  - Muscle spasms [None]
  - Dermatitis contact [None]
  - Nerve injury [None]
  - Injury [None]

NARRATIVE: CASE EVENT DATE: 20210901
